FAERS Safety Report 20504584 (Version 4)
Quarter: 2022Q2

REPORT INFORMATION
  Report Type: Report from Study
  Country: CA (occurrence: CA)
  Receive Date: 20220223
  Receipt Date: 20220531
  Transmission Date: 20220721
  Serious: Yes (Other)
  Sender: FDA-Public Use
  Company Number: CA-JNJFOC-20210508108

PATIENT
  Age: 27 Year
  Sex: Female
  Weight: 87 kg

DRUGS (6)
  1. REMICADE [Suspect]
     Active Substance: INFLIXIMAB
     Indication: Colitis ulcerative
     Route: 042
     Dates: start: 20210224
  2. REMICADE [Suspect]
     Active Substance: INFLIXIMAB
     Dosage: 0 WEEK
     Route: 042
     Dates: start: 20210514
  3. REMICADE [Suspect]
     Active Substance: INFLIXIMAB
     Dosage: 2, 6 AND EVERY 8 WEEKS?NUMBER OF UNITS INVOLVED IN THIS COMPLAINT: 10
     Route: 042
     Dates: start: 20210520
  4. REMICADE [Suspect]
     Active Substance: INFLIXIMAB
     Route: 042
  5. REMICADE [Suspect]
     Active Substance: INFLIXIMAB
     Route: 042
  6. SERTRALINE [Concomitant]
     Active Substance: SERTRALINE HYDROCHLORIDE
     Indication: Anxiety
     Route: 065

REACTIONS (17)
  - Colitis ulcerative [Recovering/Resolving]
  - Chest discomfort [Recovered/Resolved]
  - Infusion related reaction [Recovered/Resolved]
  - Gastroenteritis [Recovered/Resolved]
  - Feeling cold [Unknown]
  - COVID-19 [Unknown]
  - Feeling abnormal [Unknown]
  - Muscle strain [Unknown]
  - Alopecia [Not Recovered/Not Resolved]
  - Fatigue [Not Recovered/Not Resolved]
  - Back pain [Not Recovered/Not Resolved]
  - Therapeutic response decreased [Unknown]
  - Pain [Unknown]
  - Abdominal pain [Recovered/Resolved]
  - Arthralgia [Unknown]
  - Off label use [Unknown]
  - Incorrect drug administration rate [Unknown]

NARRATIVE: CASE EVENT DATE: 20210501
